FAERS Safety Report 20154702 (Version 1)
Quarter: 2021Q4

REPORT INFORMATION
  Report Type: Report from Study
  Country: JP (occurrence: JP)
  Receive Date: 20211207
  Receipt Date: 20211207
  Transmission Date: 20220303
  Serious: Yes (Other)
  Sender: FDA-Public Use
  Company Number: JP-CHUGAI-2021008146

PATIENT
  Age: 73 Year
  Sex: Male
  Weight: 105.1 kg

DRUGS (12)
  1. ERY-974 [Suspect]
     Active Substance: ERY-974
     Indication: Metastatic gastric cancer
     Route: 042
     Dates: start: 20210727
  2. TOCILIZUMAB [Suspect]
     Active Substance: TOCILIZUMAB
     Indication: Metastatic gastric cancer
     Route: 042
     Dates: start: 20210727
  3. AMLODIPINE BESYLATE [Concomitant]
     Active Substance: AMLODIPINE BESYLATE
     Indication: Hypertension
     Dosage: 5 MILLIGRAM, AFTER BREAKFAST
     Route: 048
     Dates: start: 2013
  4. AZILSARTAN KAMEDOXOMIL [Concomitant]
     Active Substance: AZILSARTAN KAMEDOXOMIL
     Indication: Hypertension
     Dosage: AFTER BREAKFAST
     Route: 048
     Dates: start: 2014
  5. MIRTAZAPINE [Concomitant]
     Active Substance: MIRTAZAPINE
     Indication: Insomnia
     Dosage: HS
     Route: 048
     Dates: start: 20200512
  6. CYMBALTA [Concomitant]
     Active Substance: DULOXETINE HYDROCHLORIDE
     Indication: Peripheral sensory neuropathy
     Dosage: 20 MILLIGRAM, HS
     Route: 048
     Dates: start: 20200918
  7. SODIUM FERROUS CITRATE [Concomitant]
     Active Substance: SODIUM FERROUS CITRATE
     Indication: Anaemia
     Dosage: 1.2 GRAM, AFTER BREAKFAST
     Route: 048
     Dates: start: 20210625
  8. CALONAL [Concomitant]
     Active Substance: ACETAMINOPHEN
     Indication: Cytokine release syndrome
     Route: 048
     Dates: start: 20210727, end: 20210727
  9. PRIMPERAN [Concomitant]
     Active Substance: METOCLOPRAMIDE HYDROCHLORIDE
     Indication: Cytokine release syndrome
     Dosage: 10 MILLIGRAM/DOSE
     Route: 041
     Dates: start: 20210727, end: 20210727
  10. HYDROCORTONE [Concomitant]
     Active Substance: HYDROCORTISONE
     Indication: Cytokine release syndrome
     Dosage: 100 MILLIGRAM/DOSE
     Route: 041
     Dates: start: 20210727, end: 20210727
  11. GASTER [Concomitant]
     Active Substance: FAMOTIDINE
     Indication: Cytokine release syndrome
     Dosage: 20 MILLIGRAM/DOSE
     Route: 041
     Dates: start: 20210727, end: 20210727
  12. POLARAMINE [Concomitant]
     Active Substance: DEXCHLORPHENIRAMINE MALEATE
     Indication: Cytokine release syndrome
     Dosage: 5 MILLIGRAM/DOSE
     Route: 041
     Dates: start: 20210727, end: 20210727

REACTIONS (1)
  - Hepatic function abnormal [Recovering/Resolving]

NARRATIVE: CASE EVENT DATE: 20210728
